FAERS Safety Report 16985978 (Version 1)
Quarter: 2019Q4

REPORT INFORMATION
  Report Type: Spontaneous
  Country: US (occurrence: US)
  Receive Date: 20190918
  Receipt Date: 20190918
  Transmission Date: 20200122
  Serious: Yes (Hospitalization)
  Sender: FDA-Public Use
  Company Number: None

PATIENT
  Sex: Female

DRUGS (14)
  1. SUPER STRESS [Concomitant]
  2. PROGESTERONE CAP [Concomitant]
     Active Substance: PROGESTERONE
  3. VITAMIN D3 CAP [Concomitant]
  4. PROPRANOLOL [Concomitant]
     Active Substance: PROPRANOLOL HYDROCHLORIDE
  5. LOMOTR [Concomitant]
  6. VAGIFEM [Concomitant]
     Active Substance: ESTRADIOL
  7. OMEGA 3 [Concomitant]
     Active Substance: OMEGA-3 FATTY ACIDS
  8. FOLIC ACID. [Concomitant]
     Active Substance: FOLIC ACID
  9. EYAMIST [Concomitant]
  10. GRALISE [Concomitant]
     Active Substance: GABAPENTIN
  11. XANAX [Concomitant]
     Active Substance: ALPRAZOLAM
  12. XELJANZ [Suspect]
     Active Substance: TOFACITINIB CITRATE
     Indication: RHEUMATOID ARTHRITIS
  13. TRAMADL/ASAP [Concomitant]
  14. GABAPENTIN. [Concomitant]
     Active Substance: GABAPENTIN

REACTIONS (3)
  - Nodule [None]
  - Fatigue [None]
  - Migraine [None]
